FAERS Safety Report 25674900 (Version 2)
Quarter: 2025Q3

REPORT INFORMATION
  Report Type: Report from Study
  Country: CA (occurrence: None)
  Receive Date: 20250813
  Receipt Date: 20250912
  Transmission Date: 20251020
  Serious: Yes (Other)
  Sender: ORION
  Company Number: CA-PFIZER INC-202500159389

PATIENT
  Age: 20 Year
  Sex: Female

DRUGS (5)
  1. METHOTREXATE [Suspect]
     Active Substance: METHOTREXATE
     Indication: Product used for unknown indication
  2. RENFLEXIS [Suspect]
     Active Substance: INFLIXIMAB-ABDA
     Indication: Crohn^s disease
     Dosage: SINGLE USE VIAL
  3. RENFLEXIS [Suspect]
     Active Substance: INFLIXIMAB-ABDA
     Dosage: SINGLE USE VIAL
  4. RENFLEXIS [Suspect]
     Active Substance: INFLIXIMAB-ABDA
     Dosage: SINGLE USE VIAL
  5. IRON [Concomitant]
     Active Substance: IRON

REACTIONS (7)
  - Malaise [Unknown]
  - Urinary tract infection [Unknown]
  - Abdominal pain [Unknown]
  - Anal abscess [Unknown]
  - Diarrhoea [Unknown]
  - Fistula [Unknown]
  - Off label use [Unknown]
